FAERS Safety Report 18589682 (Version 1)
Quarter: 2020Q4

REPORT INFORMATION
  Report Type: Spontaneous
  Country: FR (occurrence: FR)
  Receive Date: 20201208
  Receipt Date: 20201208
  Transmission Date: 20210114
  Serious: Yes (Hospitalization)
  Sender: FDA-Public Use
  Company Number: NVSC2020FR319457

PATIENT
  Age: 52 Year
  Sex: Female

DRUGS (11)
  1. DIAZEPAM. [Suspect]
     Active Substance: DIAZEPAM
     Indication: ANXIETY
     Dosage: 15 MG, QD
     Route: 048
     Dates: start: 20201110, end: 20201116
  2. PARACETAMOL [Suspect]
     Active Substance: ACETAMINOPHEN
     Indication: BACK PAIN
     Dosage: 4 G, QD
     Route: 048
     Dates: start: 20201110, end: 20201115
  3. KETOPROFEN. [Suspect]
     Active Substance: KETOPROFEN
     Dosage: 200 MG, QD
     Route: 048
     Dates: start: 20201115, end: 20201116
  4. PARACETAMOL [Suspect]
     Active Substance: ACETAMINOPHEN
     Dosage: 2000 MG, QD
     Route: 048
     Dates: start: 20201116, end: 20201120
  5. PANTOPRAZOLE [Suspect]
     Active Substance: PANTOPRAZOLE
     Indication: PROPHYLAXIS AGAINST GASTROINTESTINAL ULCER
     Dosage: 20 MG, QD
     Route: 048
     Dates: start: 20201110, end: 20201120
  6. LOVENOX [Suspect]
     Active Substance: ENOXAPARIN SODIUM
     Indication: THROMBOSIS PROPHYLAXIS
     Dosage: 4000 IU, Q24H
     Route: 058
     Dates: start: 20201110, end: 20201120
  7. KETOPROFEN. [Suspect]
     Active Substance: KETOPROFEN
     Indication: BACK PAIN
     Dosage: 200 MG, QD
     Route: 042
     Dates: start: 20201110, end: 20201114
  8. ACUPAN [Suspect]
     Active Substance: NEFOPAM HYDROCHLORIDE
     Indication: BACK PAIN
     Dosage: 3 DF, QD
     Route: 042
     Dates: start: 20201110, end: 20201116
  9. TRAMADOL. [Suspect]
     Active Substance: TRAMADOL
     Indication: BACK PAIN
     Dosage: 200 MG, QD
     Route: 042
     Dates: start: 20201110, end: 20201115
  10. CONTRAMAL [Suspect]
     Active Substance: TRAMADOL HYDROCHLORIDE
     Indication: BACK PAIN
     Dosage: 2 DF, QD (COMPRIME A LIBERATION PROLONGEE)
     Route: 048
     Dates: start: 20201115, end: 20201116
  11. IZALGI [Suspect]
     Active Substance: ACETAMINOPHEN\OPIUM
     Indication: BACK PAIN
     Dosage: 1 DF, Q6H
     Route: 048
     Dates: start: 20201116

REACTIONS (2)
  - Hepatocellular injury [Recovering/Resolving]
  - Hypertransaminasaemia [Recovering/Resolving]

NARRATIVE: CASE EVENT DATE: 20201117
